FAERS Safety Report 15076043 (Version 1)
Quarter: 2018Q2

REPORT INFORMATION
  Report Type: Spontaneous
  Country: CO (occurrence: CO)
  Receive Date: 20180627
  Receipt Date: 20180627
  Transmission Date: 20180711
  Serious: Yes (Hospitalization)
  Sender: FDA-Public Use
  Company Number: CO-LPDUSPRD-20181101

PATIENT
  Age: 65 Year
  Sex: Male
  Weight: 100 kg

DRUGS (1)
  1. FERINJECT [Suspect]
     Active Substance: FERRIC CARBOXYMALTOSE
     Dosage: 1 GM
     Route: 041
     Dates: start: 20180606, end: 20180606

REACTIONS (7)
  - Flushing [Recovered/Resolved]
  - Urticaria [Recovered/Resolved]
  - Purpura [Recovered/Resolved]
  - Pruritus [Recovered/Resolved]
  - Rash generalised [Recovered/Resolved]
  - Angioedema [Recovered/Resolved]
  - Dysgeusia [Recovered/Resolved]

NARRATIVE: CASE EVENT DATE: 20180606
